FAERS Safety Report 13286791 (Version 1)
Quarter: 2017Q1

REPORT INFORMATION
  Report Type: Spontaneous
  Country: GB (occurrence: GB)
  Receive Date: 20170301
  Receipt Date: 20170301
  Transmission Date: 20170428
  Serious: Yes (Hospitalization)
  Sender: FDA-Public Use
  Company Number: GB-ROCHE-1899746

PATIENT
  Age: 28 Year
  Sex: Male

DRUGS (1)
  1. MABTHERA [Suspect]
     Active Substance: RITUXIMAB
     Indication: VASCULITIS
     Route: 065

REACTIONS (2)
  - Pain in extremity [Recovered/Resolved]
  - Muscular weakness [Unknown]
